FAERS Safety Report 24451435 (Version 1)
Quarter: 2024Q4

REPORT INFORMATION
  Report Type: Spontaneous
  Country: US (occurrence: US)
  Receive Date: 20241017
  Receipt Date: 20241017
  Transmission Date: 20250115
  Serious: No
  Sender: PRASCO
  Company Number: US-Prasco Laboratories-PRAS20241198

PATIENT
  Sex: Female

DRUGS (2)
  1. ESTRADIOL [Suspect]
     Active Substance: ESTRADIOL
     Indication: Atrophic vulvovaginitis
     Dosage: 1 GRAM
     Route: 067
     Dates: start: 20240622, end: 20240822
  2. ESTRADIOL [Suspect]
     Active Substance: ESTRADIOL
     Indication: Prophylaxis

REACTIONS (3)
  - Vulvovaginal burning sensation [Recovered/Resolved]
  - Reaction to excipient [Recovered/Resolved]
  - Product substitution issue [None]

NARRATIVE: CASE EVENT DATE: 20240101
